FAERS Safety Report 7534501-4 (Version None)
Quarter: 2011Q2

REPORT INFORMATION
  Report Type: 
  Country: None (occurrence: None)
  Receive Date: 20110609
  Receipt Date: 20090611
  Transmission Date: 20111010
  Serious: Yes (Death, Hospitalization)
  Sender: FDA-Public Use
  Company Number: PHHY2009NL15427

PATIENT
  Sex: Male

DRUGS (13)
  1. ACENOCOUMAROL [Concomitant]
     Dates: start: 20010801
  2. PREDNISONE [Concomitant]
     Dosage: 100 MG, DAILY
     Dates: start: 20071201
  3. CASODEX [Concomitant]
     Dosage: 50 MG, DAILY
     Dates: start: 20070212, end: 20070326
  4. ELIGARD [Concomitant]
     Dates: start: 20051114, end: 20070727
  5. CALCICHEW D3 [Concomitant]
     Dosage: 500 MG, DAILY
     Dates: start: 20070212, end: 20070226
  6. ZOMETA [Suspect]
     Indication: METASTASES TO BONE
     Dosage: 4 MG, QMO
     Route: 042
     Dates: start: 20070228
  7. DOCETAXEL [Concomitant]
     Dates: start: 20071122, end: 20071129
  8. ACETAMINOPHEN [Concomitant]
     Dosage: 500 MG, UNK
     Dates: start: 20070720, end: 20070820
  9. METOPROLOL [Concomitant]
     Dosage: 100 MG, UNK
     Dates: start: 20010801
  10. TRAMADOL HCL [Concomitant]
     Dosage: 50 MG, TID
     Dates: start: 20070720, end: 20070801
  11. ALFACALCIDOL [Concomitant]
     Dosage: 1 DF, DAILY
     Dates: start: 20060501
  12. ANDROCUR [Concomitant]
     Dosage: 300 MG, DAILY
     Dates: start: 20070727
  13. ANDROCUR [Concomitant]
     Dosage: 100 MG, UNK
     Dates: start: 20071030, end: 20071130

REACTIONS (3)
  - PROSTATE CANCER METASTATIC [None]
  - TACHYCARDIA [None]
  - THROMBOSIS [None]
